FAERS Safety Report 16114128 (Version 2)
Quarter: 2021Q2

REPORT INFORMATION
  Report Type: Spontaneous
  Country: US (occurrence: US)
  Receive Date: 20190325
  Receipt Date: 20210413
  Transmission Date: 20210716
  Serious: No
  Sender: FDA-Public Use
  Company Number: US-ALLERGAN-1850804US

PATIENT
  Age: 57 Year
  Sex: Female
  Weight: 53.88 kg

DRUGS (4)
  1. LATISSE [Suspect]
     Active Substance: BIMATOPROST
     Indication: GROWTH OF EYELASHES
     Dosage: 2 GTT, QHS
     Dates: start: 20181023, end: 20181024
  2. LATISSE [Suspect]
     Active Substance: BIMATOPROST
     Dosage: 2 GTT, QHS
     Route: 061
     Dates: start: 201809
  3. ACYCLOVIR. [Concomitant]
     Active Substance: ACYCLOVIR
     Indication: PRODUCT USED FOR UNKNOWN INDICATION
     Dosage: UNK
     Route: 048
     Dates: start: 201806
  4. EYELINER [Concomitant]
     Dosage: UNK

REACTIONS (8)
  - Wrong technique in product usage process [Unknown]
  - Dysgeusia [Not Recovered/Not Resolved]
  - Hypersensitivity [Not Recovered/Not Resolved]
  - Lacrimation increased [Not Recovered/Not Resolved]
  - Eye irritation [Not Recovered/Not Resolved]
  - Product dose omission issue [Unknown]
  - Eye pruritus [Not Recovered/Not Resolved]
  - Vision blurred [Not Recovered/Not Resolved]

NARRATIVE: CASE EVENT DATE: 20180927
